FAERS Safety Report 5485142-4 (Version None)
Quarter: 2007Q4

REPORT INFORMATION
  Report Type: 
  Country: None (occurrence: None)
  Receive Date: 20071015
  Receipt Date: 20071008
  Transmission Date: 20080405
  Serious: Yes (Death)
  Sender: FDA-Public Use
  Company Number: RO-ABBOTT-07P-135-0419782-00

PATIENT
  Age: 18 Year
  Sex: Male
  Weight: 42 kg

DRUGS (9)
  1. KALETRA [Suspect]
     Indication: HIV INFECTION
     Dosage: 800/200
     Route: 048
     Dates: start: 20060826, end: 20071005
  2. ZIDOVUDINE [Concomitant]
     Indication: HIV INFECTION
     Route: 048
     Dates: start: 20060826, end: 20071005
  3. DIDANOSINE [Concomitant]
     Indication: HIV INFECTION
     Route: 048
     Dates: start: 20060826, end: 20071005
  4. FUROSEMIDE [Concomitant]
     Indication: CARDIAC DISORDER
     Route: 048
     Dates: start: 20060512, end: 20071005
  5. FUROSEMIDE [Concomitant]
     Indication: CARDIAC FAILURE
  6. DIGOXIN [Concomitant]
     Indication: CARDIAC DISORDER
     Route: 048
     Dates: start: 20060512, end: 20071005
  7. DIGOXIN [Concomitant]
     Indication: CARDIAC FAILURE
  8. ENALAPRIL MALEATE [Concomitant]
     Indication: CARDIAC DISORDER
     Route: 048
     Dates: start: 20060512, end: 20071005
  9. ENALAPRIL MALEATE [Concomitant]
     Indication: CARDIAC FAILURE

REACTIONS (1)
  - CARDIAC DISORDER [None]
